FAERS Safety Report 6150711-5 (Version None)
Quarter: 2009Q2

REPORT INFORMATION
  Report Type: 
  Country: None (occurrence: None)
  Receive Date: 20090409
  Receipt Date: 20090331
  Transmission Date: 20091009
  Serious: Yes (Other)
  Sender: FDA-Public Use
  Company Number: BR-WYE-H08847209

PATIENT
  Sex: Female

DRUGS (3)
  1. ATLANSIL [Suspect]
     Indication: ARRHYTHMIA
     Dosage: 100 MG DAILY MONDAY THRU FRIDAY
     Route: 048
     Dates: start: 19820101
  2. RIVOTRIL [Concomitant]
     Indication: CARDIAC DISORDER
     Dosage: 1 UNIT EVERY 1 DAY
     Route: 048
     Dates: start: 19820101
  3. RIVOTRIL [Concomitant]
     Indication: NERVOUS SYSTEM DISORDER

REACTIONS (5)
  - BRADYCARDIA [None]
  - DEPRESSED MOOD [None]
  - FATIGUE [None]
  - MYALGIA [None]
  - VISION BLURRED [None]
